FAERS Safety Report 25083882 (Version 1)
Quarter: 2025Q1

REPORT INFORMATION
  Report Type: Spontaneous
  Country: FR (occurrence: FR)
  Receive Date: 20250317
  Receipt Date: 20250317
  Transmission Date: 20250409
  Serious: Yes (Other)
  Sender: CHEPLAPHARM
  Company Number: None

PATIENT
  Age: 27 Year
  Sex: Male

DRUGS (6)
  1. CLONAZEPAM [Suspect]
     Active Substance: CLONAZEPAM
  2. PREGABALIN [Suspect]
     Active Substance: PREGABALIN
  3. MIDOMAFETAMINE [Suspect]
     Active Substance: MIDOMAFETAMINE
  4. CANNABIS SATIVA SUBSP. INDICA TOP [Suspect]
     Active Substance: CANNABIS SATIVA SUBSP. INDICA TOP
  5. AMPHETAMINE [Suspect]
     Active Substance: AMPHETAMINE
  6. ALCOHOL [Suspect]
     Active Substance: ALCOHOL

REACTIONS (4)
  - Altered state of consciousness [Recovered/Resolved]
  - Tachycardia [Recovered/Resolved]
  - Substance use disorder [Unknown]
  - Drug use disorder [Unknown]

NARRATIVE: CASE EVENT DATE: 20241027
